FAERS Safety Report 5895591-8 (Version None)
Quarter: 2008Q3

REPORT INFORMATION
  Report Type: 
  Country: None (occurrence: None)
  Receive Date: 20080924
  Receipt Date: 20080320
  Transmission Date: 20090109
  Serious: No
  Sender: FDA-Public Use
  Company Number: US-ASTRAZENECA-2006UW08435

PATIENT
  Age: 13639 Day
  Sex: Female
  Weight: 108.9 kg

DRUGS (2)
  1. SEROQUEL [Suspect]
     Indication: DEPRESSION
     Route: 048
     Dates: start: 20060101
  2. ABILIFY [Concomitant]

REACTIONS (2)
  - BACK INJURY [None]
  - DIABETES MELLITUS [None]
